FAERS Safety Report 5174007-3 (Version None)
Quarter: 2006Q4

REPORT INFORMATION
  Report Type: 
  Country: None (occurrence: None)
  Receive Date: 20061214
  Receipt Date: 20061206
  Transmission Date: 20070319
  Serious: Yes (Hospitalization)
  Sender: FDA-Public Use
  Company Number: GB-AMGEN-UK202834

PATIENT
  Sex: Female
  Weight: 62 kg

DRUGS (16)
  1. KINERET [Suspect]
     Indication: RHEUMATOID ARTHRITIS
     Route: 065
     Dates: start: 20041215, end: 20050523
  2. ATORVASTATIN CALCIUM [Concomitant]
     Route: 065
  3. BISACODYL [Concomitant]
     Route: 065
  4. BISOPROLOL FUMARATE [Concomitant]
     Route: 065
  5. CANDESARTAN [Concomitant]
     Route: 065
  6. CLOPIDOGREL [Concomitant]
     Route: 065
  7. CO-PROXAMOL [Concomitant]
     Route: 065
  8. DIHYDROCODEINE BITARTRATE INJ [Concomitant]
     Route: 065
  9. FUROSEMIDE [Concomitant]
     Route: 065
  10. GTN-S [Concomitant]
     Route: 060
  11. LACTULOSE [Concomitant]
     Route: 065
  12. MST [Concomitant]
     Route: 065
  13. NICORANDIL [Concomitant]
     Route: 065
  14. ORAMORPH SR [Concomitant]
     Route: 065
  15. PREDNISOLONE [Concomitant]
     Route: 065
  16. LEVOTHYROXINE SODIUM [Concomitant]
     Route: 065

REACTIONS (2)
  - DRUG INEFFECTIVE [None]
  - HORMONE LEVEL ABNORMAL [None]
